FAERS Safety Report 5586821-0 (Version None)
Quarter: 2008Q1

REPORT INFORMATION
  Report Type: 
  Country: None (occurrence: None)
  Receive Date: 20080110
  Receipt Date: 20071231
  Transmission Date: 20080703
  Serious: Yes (Hospitalization)
  Sender: FDA-Public Use
  Company Number: GB-ROCHE-539110

PATIENT
  Age: 10 Month
  Sex: Female

DRUGS (3)
  1. CEFTRIAXONE SODIUM [Suspect]
     Indication: MENINGOCOCCAL SEPSIS
     Route: 042
  2. ALBUMIN (HUMAN) [Concomitant]
  3. SALINE MIXTURE [Concomitant]

REACTIONS (2)
  - CONDITION AGGRAVATED [None]
  - HAEMOLYTIC URAEMIC SYNDROME [None]
